FAERS Safety Report 13155060 (Version 4)
Quarter: 2017Q3

REPORT INFORMATION
  Report Type: Spontaneous
  Country: US (occurrence: US)
  Receive Date: 20170126
  Receipt Date: 20170821
  Transmission Date: 20171127
  Serious: No
  Sender: FDA-Public Use
  Company Number: US-PFIZER INC-2017031759

PATIENT
  Age: 60 Year
  Sex: Female

DRUGS (3)
  1. LETROZOLE. [Suspect]
     Active Substance: LETROZOLE
     Dosage: UNK
  2. IBRANCE [Suspect]
     Active Substance: PALBOCICLIB
     Dosage: UNK
     Dates: start: 201701
  3. IBRANCE [Suspect]
     Active Substance: PALBOCICLIB
     Indication: BREAST CANCER METASTATIC
     Dosage: 125 MG, CYCLIC (1 CAPSULE FOR 21 DAYS ON AND 7 DAYS OFF)
     Route: 048
     Dates: start: 201612

REACTIONS (7)
  - Constipation [Recovered/Resolved]
  - Dry skin [Unknown]
  - Disorientation [Unknown]
  - Rash [Unknown]
  - Diarrhoea [Unknown]
  - Pruritus [Unknown]
  - Lethargy [Unknown]
